FAERS Safety Report 6442533-2 (Version None)
Quarter: 2009Q4

REPORT INFORMATION
  Report Type: 
  Country: None (occurrence: None)
  Receive Date: 20091117
  Receipt Date: 20091106
  Transmission Date: 20100525
  Serious: Yes (Disabling)
  Sender: FDA-Public Use
  Company Number: US-ALLERGAN-0911696US

PATIENT
  Age: 59 Year
  Sex: Female
  Weight: 81.179 kg

DRUGS (30)
  1. BOTOX [Suspect]
     Indication: BLEPHAROSPASM
     Dosage: 120 UNITS, UNK
     Route: 030
     Dates: start: 20090402, end: 20090402
  2. BOTOX [Suspect]
     Indication: MIGRAINE
     Dosage: UNK UNITS, SINGLE
     Route: 065
     Dates: start: 20090402, end: 20090402
  3. BOTOX [Suspect]
     Indication: MYOFASCIAL PAIN SYNDROME
     Dosage: 120 UNITS, SINGLE
     Route: 030
     Dates: start: 20090709, end: 20090709
  4. BOTOX [Suspect]
     Dosage: 100 UNITS, SINGLE
     Route: 030
     Dates: start: 20070222, end: 20070222
  5. BOTOX [Suspect]
     Dosage: 100 UNITS, SINGLE
     Route: 030
     Dates: start: 20070531, end: 20070531
  6. BOTOX [Suspect]
     Dosage: 100 UNITS, SINGLE
     Route: 030
     Dates: start: 20070913, end: 20070913
  7. BOTOX [Suspect]
     Dosage: 100 UNITS, SINGLE
     Route: 030
     Dates: start: 20071220, end: 20071220
  8. BOTOX [Suspect]
     Dosage: 115 UNITS, SINGLE
     Route: 030
     Dates: start: 20080317, end: 20080317
  9. BOTOX [Suspect]
     Dosage: 108 UNITS, SINGLE
     Route: 030
     Dates: start: 20080619, end: 20080619
  10. BOTOX [Suspect]
     Dosage: 110 UNITS, SINGLE
     Route: 030
     Dates: start: 20081009, end: 20081009
  11. BOTOX [Suspect]
     Dosage: 110 UNITS, SINGLE
     Route: 030
     Dates: start: 20090108, end: 20090108
  12. SALEX [Concomitant]
     Dosage: AD EVERY OTHER DAY
     Dates: start: 20090408
  13. NIZORAL [Concomitant]
     Dosage: SHAMP APPLY AD EVERY OTHER DAY
     Dates: start: 20090408
  14. SYNTHROID [Concomitant]
     Dosage: 88 MG, 1 DAILY
     Dates: start: 20090116
  15. CALCIUM +D [Concomitant]
     Dosage: 630/400 2 TABS ONCE EACH DAY
     Dates: start: 20080728
  16. NIFEDEREX [Concomitant]
     Dosage: 90 MG, 1 TAB TWICE EACH DAY
     Dates: start: 20080710
  17. FISH OIL [Concomitant]
     Dosage: 1000 MG, 3 DAILY
     Dates: start: 20071029
  18. MULTI-VITAMINS [Concomitant]
     Dosage: 1 TAB ONCE EACH DAY
     Dates: start: 20070703
  19. ASPIRIN [Concomitant]
     Dosage: 81 MG, 2 ONCE EACH DAY
     Dates: start: 20030101
  20. TOPAMAX [Concomitant]
     Dosage: 50 MG, BID
  21. TOPAMAX [Concomitant]
     Dosage: 6 MG, BID
  22. TOPAMAX [Concomitant]
     Dosage: 100 MG, QD
  23. CARBAMAZEPINE [Concomitant]
     Dosage: 100 MG, QD
  24. IMITREX [Concomitant]
     Indication: MIGRAINE
     Dosage: 100 MG, QD
  25. AUGMENTIN [Concomitant]
     Indication: SINUSITIS
  26. FOSAMAX [Concomitant]
     Dosage: 70 1 TAB WEEKLY
  27. AMITRIPTYLINE HCL [Concomitant]
     Dosage: 50 MG, QHS
  28. ZOCOR [Concomitant]
     Dosage: 10 MG, QHS
  29. CLOBETASOL PROPIONATE [Concomitant]
     Dosage: SOLUTION APP AA
  30. NASONEX [Concomitant]
     Dosage: 50 A?G, 2SP QD

REACTIONS (6)
  - DRUG INEFFECTIVE [None]
  - INJECTION SITE PAIN [None]
  - INJECTION SITE SWELLING [None]
  - MIGRAINE [None]
  - MYOKYMIA [None]
  - THERAPEUTIC RESPONSE DECREASED [None]
